FAERS Safety Report 5075551-X (Version None)
Quarter: 2006Q3

REPORT INFORMATION
  Report Type: 
  Country: None (occurrence: None)
  Receive Date: 20060809
  Receipt Date: 20060727
  Transmission Date: 20061208
  Serious: Yes (Disabling)
  Sender: FDA-Public Use
  Company Number: 2006GB01302

PATIENT
  Age: 47 Year
  Sex: Female

DRUGS (2)
  1. ANASTROZOLE [Suspect]
     Indication: BREAST CANCER
     Route: 048
     Dates: start: 20060413, end: 20060519
  2. MEGACE [Concomitant]
     Indication: HOT FLUSH
     Route: 048
     Dates: start: 20040623, end: 20060512

REACTIONS (3)
  - MUSCULOSKELETAL PAIN [None]
  - PELVIC PAIN [None]
  - SACROILIITIS [None]
